FAERS Safety Report 20826164 (Version 11)
Quarter: 2022Q3

REPORT INFORMATION
  Report Type: Spontaneous
  Country: BR (occurrence: BR)
  Receive Date: 20220513
  Receipt Date: 20220823
  Transmission Date: 20221027
  Serious: Yes (Hospitalization, Other)
  Sender: FDA-Public Use
  Company Number: BR-PFIZER INC-202200640135

PATIENT
  Age: 42 Year
  Sex: Female
  Weight: 63 kg

DRUGS (16)
  1. ALPRAZOLAM [Suspect]
     Active Substance: ALPRAZOLAM
     Indication: Anxiety
     Dosage: 2.5 MG
     Dates: start: 2018, end: 202204
  2. ALPRAZOLAM [Suspect]
     Active Substance: ALPRAZOLAM
     Dosage: 4 MG
     Dates: start: 201808
  3. ALPRAZOLAM [Suspect]
     Active Substance: ALPRAZOLAM
     Dosage: 6 MG
  4. ALPRAZOLAM [Suspect]
     Active Substance: ALPRAZOLAM
     Dosage: 2 MG
  5. ALPRAZOLAM [Suspect]
     Active Substance: ALPRAZOLAM
     Dosage: 0.5 MG
  6. ALPRAZOLAM [Suspect]
     Active Substance: ALPRAZOLAM
     Dosage: 0.25 MG
  7. LITHIUM [Concomitant]
     Active Substance: LITHIUM
     Dosage: UNK
     Dates: start: 20220110
  8. RISPERIDONE [Concomitant]
     Active Substance: RISPERIDONE
     Dosage: UNK
     Dates: start: 20220110
  9. AMITRIPTYLINE [Concomitant]
     Active Substance: AMITRIPTYLINE
     Dosage: UNK
     Dates: start: 202201
  10. QUETIAPINE [Concomitant]
     Active Substance: QUETIAPINE
     Dosage: 100 MG
     Dates: start: 202201
  11. QUETIAPINE [Concomitant]
     Active Substance: QUETIAPINE
     Dosage: UNK
     Dates: start: 20220510
  12. ZOLPIDEM [Concomitant]
     Active Substance: ZOLPIDEM TARTRATE
     Dosage: UNK
  13. TRAZODONE HYDROCHLORIDE [Concomitant]
     Active Substance: TRAZODONE HYDROCHLORIDE
     Dosage: UNK
  14. MELATONIN [Concomitant]
     Active Substance: MELATONIN
     Dosage: UNK
  15. PRYSMA [ESZOPICLONE] [Concomitant]
     Dosage: 3 MG
     Dates: start: 20220620
  16. PRYSMA [ESZOPICLONE] [Concomitant]
     Dosage: UNK
     Dates: start: 20220620

REACTIONS (42)
  - Brain injury [Not Recovered/Not Resolved]
  - Drug dependence [Not Recovered/Not Resolved]
  - Suicidal ideation [Unknown]
  - Loss of consciousness [Unknown]
  - Mental impairment [Unknown]
  - Seizure [Unknown]
  - Insomnia [Not Recovered/Not Resolved]
  - Pain [Unknown]
  - Drug ineffective [Unknown]
  - Anxiety [Not Recovered/Not Resolved]
  - Nervous system disorder [Not Recovered/Not Resolved]
  - Feeling abnormal [Not Recovered/Not Resolved]
  - Malaise [Recovered/Resolved]
  - Feeling cold [Unknown]
  - Electric shock sensation [Unknown]
  - Cerebral disorder [Unknown]
  - Crying [Unknown]
  - Headache [Unknown]
  - Vomiting [Unknown]
  - Emotional distress [Unknown]
  - Head discomfort [Unknown]
  - Drug withdrawal syndrome [Unknown]
  - Sleep disorder [Unknown]
  - Fatigue [Not Recovered/Not Resolved]
  - Tachyphrenia [Unknown]
  - Muscle twitching [Unknown]
  - Nausea [Unknown]
  - Depressed mood [Unknown]
  - Illness [Unknown]
  - Swollen tongue [Recovered/Resolved]
  - Tinnitus [Not Recovered/Not Resolved]
  - Dyspnoea [Recovered/Resolved]
  - Cough [Recovered/Resolved]
  - Disorientation [Not Recovered/Not Resolved]
  - Feeling of despair [Unknown]
  - Nasopharyngitis [Unknown]
  - Pruritus [Unknown]
  - Eye irritation [Unknown]
  - Eye pruritus [Unknown]
  - Sluggishness [Unknown]
  - Intentional dose omission [Unknown]
  - Gastrointestinal pain [Unknown]

NARRATIVE: CASE EVENT DATE: 20180101
